FAERS Safety Report 22595536 (Version 1)
Quarter: 2023Q2

REPORT INFORMATION
  Report Type: Spontaneous
  Country: CA (occurrence: CA)
  Receive Date: 20230613
  Receipt Date: 20230613
  Transmission Date: 20230722
  Serious: Yes (Other)
  Sender: FDA-Public Use
  Company Number: CA-BAYER-2023A080705

PATIENT
  Age: 61 Year
  Sex: Female

DRUGS (1)
  1. POLYETHYLENE GLYCOL 3350 [Suspect]
     Active Substance: POLYETHYLENE GLYCOL 3350
     Dates: start: 20230521, end: 20230521

REACTIONS (1)
  - Swelling face [None]

NARRATIVE: CASE EVENT DATE: 20230521
